FAERS Safety Report 25419555 (Version 1)
Quarter: 2025Q2

REPORT INFORMATION
  Report Type: Spontaneous
  Country: MX (occurrence: MX)
  Receive Date: 20250610
  Receipt Date: 20250610
  Transmission Date: 20250716
  Serious: Yes (Other)
  Sender: RIGEL PHARMACEUTICALS
  Company Number: MX-RIGEL PHARMACEUTICALS, INC-20250600030

PATIENT
  Sex: Male

DRUGS (1)
  1. GAVRETO [Suspect]
     Active Substance: PRALSETINIB
     Indication: Product used for unknown indication
     Route: 065

REACTIONS (1)
  - Neoplasm malignant [Unknown]
